FAERS Safety Report 13802319 (Version 1)
Quarter: 2017Q3

REPORT INFORMATION
  Report Type: Spontaneous
  Country: FR (occurrence: FR)
  Receive Date: 20170728
  Receipt Date: 20170728
  Transmission Date: 20171127
  Serious: Yes (Life-Threatening, Congenital Anomaly)
  Sender: FDA-Public Use
  Company Number: FR-EMD SERONO-8171135

PATIENT
  Age: 0 Day
  Sex: Male

DRUGS (5)
  1. GYNEFAM XL [Suspect]
     Active Substance: FISH OIL\MINERALS\VITAMINS
     Indication: NUTRITIONAL SUPPLEMENTATION
     Route: 064
  2. ORGALUTRAN [Suspect]
     Active Substance: GANIRELIX ACETATE
     Indication: IN VITRO FERTILISATION
     Route: 064
  3. SPASFON                            /00765801/ [Suspect]
     Active Substance: PHLOROGLUCINOL\1,3,5-TRIMETHOXYBENZENE
     Indication: PRODUCT USED FOR UNKNOWN INDICATION
     Route: 064
  4. OVITRELLE [Suspect]
     Active Substance: CHORIOGONADOTROPIN ALFA
     Indication: IN VITRO FERTILISATION
     Route: 064
  5. GONAL-F [Suspect]
     Active Substance: FOLLITROPIN
     Indication: IN VITRO FERTILISATION
     Route: 064

REACTIONS (6)
  - Maternal drugs affecting foetus [None]
  - Premature baby [None]
  - Wrong drug administered [None]
  - Talipes [Unknown]
  - Pulmonary artery atresia [Recovered/Resolved]
  - Foetal growth restriction [None]

NARRATIVE: CASE EVENT DATE: 20160805
